FAERS Safety Report 20611705 (Version 1)
Quarter: 2022Q1

REPORT INFORMATION
  Report Type: Spontaneous
  Country: US (occurrence: None)
  Receive Date: 20220317
  Receipt Date: 20220317
  Transmission Date: 20220424
  Serious: No
  Sender: FDA-Public Use
  Company Number: None

PATIENT
  Sex: Female

DRUGS (2)
  1. JAKAFI [Suspect]
     Active Substance: RUXOLITINIB
     Dosage: FREQUENCY : TWICE A DAY;?
     Route: 048
  2. ASPIRIN [Suspect]
     Active Substance: ASPIRIN

REACTIONS (1)
  - Haemorrhage [None]
